FAERS Safety Report 21898764 (Version 1)
Quarter: 2023Q1

REPORT INFORMATION
  Report Type: Spontaneous
  Country: US (occurrence: None)
  Receive Date: 20230122
  Receipt Date: 20230122
  Transmission Date: 20230418
  Serious: Yes (Other)
  Sender: FDA-Public Use
  Company Number: None

PATIENT
  Age: 62 Year
  Sex: Female
  Weight: 58.05 kg

DRUGS (7)
  1. MESALAMINE [Suspect]
     Active Substance: MESALAMINE
     Indication: Colitis ulcerative
     Dosage: OTHER QUANTITY : 4 TABLET(S);?FREQUENCY : DAILY;?
     Route: 048
     Dates: start: 20230106, end: 20230122
  2. XANAX [Concomitant]
     Active Substance: ALPRAZOLAM
  3. Mesalamine enemas [Concomitant]
  4. MESALAMINE [Concomitant]
     Active Substance: MESALAMINE
  5. MINERALS\VITAMINS [Concomitant]
     Active Substance: MINERALS\VITAMINS
  6. CALTRATE [Concomitant]
     Active Substance: CALCIUM CARBONATE
  7. VITAMIN D3 [Concomitant]
     Active Substance: CHOLECALCIFEROL

REACTIONS (4)
  - Manufacturing issue [None]
  - Diarrhoea [None]
  - Product formulation issue [None]
  - Product quality issue [None]

NARRATIVE: CASE EVENT DATE: 20230111
